FAERS Safety Report 17846171 (Version 1)
Quarter: 2020Q2

REPORT INFORMATION
  Report Type: Spontaneous
  Country: FR (occurrence: FR)
  Receive Date: 20200601
  Receipt Date: 20200601
  Transmission Date: 20200714
  Serious: Yes (Hospitalization)
  Sender: FDA-Public Use
  Company Number: FR-ACCORD-183681

PATIENT
  Age: 61 Year
  Sex: Female
  Weight: 49.6 kg

DRUGS (2)
  1. OXALIPLATIN ACCORD [Concomitant]
     Active Substance: OXALIPLATIN
     Dosage: STRENGTH 5 MG / ML
  2. FLUOROURACIL ACCORD [Suspect]
     Active Substance: FLUOROURACIL
     Indication: OESOPHAGEAL CANCER METASTATIC
     Dosage: STRENGTH 50 MG / ML
     Route: 041
     Dates: start: 20200415

REACTIONS (2)
  - Acute pulmonary oedema [Recovered/Resolved]
  - Cardiac failure [Recovering/Resolving]

NARRATIVE: CASE EVENT DATE: 20200421
